FAERS Safety Report 6337308-9 (Version None)
Quarter: 2009Q3

REPORT INFORMATION
  Report Type: 
  Country: None (occurrence: None)
  Receive Date: 20090828
  Receipt Date: 20090828
  Transmission Date: 20100115
  Serious: Yes (Hospitalization)
  Sender: FDA-Public Use
  Company Number: None

PATIENT
  Sex: Female
  Weight: 88.3 kg

DRUGS (12)
  1. SORAFENIB 200 MG BAYER [Suspect]
     Indication: BREAST CANCER METASTATIC
     Dosage: 200 MG DAILY PO
     Route: 048
     Dates: start: 20090211, end: 20090819
  2. VINORELBINE [Suspect]
     Indication: BREAST CANCER METASTATIC
     Dosage: 20 MG/M2 WEEKLY X 3 IV
     Route: 042
     Dates: start: 20090111, end: 20090819
  3. KLOR-CON [Concomitant]
  4. ZYPREXA [Concomitant]
  5. DARVOCET [Concomitant]
  6. LISINOPRIL [Concomitant]
  7. DOCUSATE [Concomitant]
  8. METOPROLOL [Concomitant]
  9. AMLODIPINE [Concomitant]
  10. ASPIRIN [Concomitant]
  11. GLIPIZIDE [Concomitant]
  12. METFORMIN HCL [Concomitant]

REACTIONS (6)
  - ALTERED STATE OF CONSCIOUSNESS [None]
  - BLOOD GLUCOSE DECREASED [None]
  - BLOOD GLUCOSE INCREASED [None]
  - DEMENTIA ALZHEIMER'S TYPE [None]
  - DEPRESSED LEVEL OF CONSCIOUSNESS [None]
  - HYPOGLYCAEMIA [None]
